FAERS Safety Report 5638171-1 (Version None)
Quarter: 2008Q1

REPORT INFORMATION
  Report Type: 
  Country: None (occurrence: None)
  Receive Date: 20080226
  Receipt Date: 20080214
  Transmission Date: 20080703
  Serious: Yes (Hospitalization)
  Sender: FDA-Public Use
  Company Number: GR-BRISTOL-MYERS SQUIBB COMPANY-14087449

PATIENT
  Age: 57 Year
  Sex: Female

DRUGS (8)
  1. ENDOXAN [Suspect]
     Indication: BREAST CANCER
     Route: 042
     Dates: start: 20071122, end: 20071220
  2. EMTHEXATE [Suspect]
     Indication: BREAST CANCER
     Route: 042
     Dates: start: 20071122, end: 20071220
  3. FLUOROURACIL [Suspect]
     Indication: BREAST CANCER
     Route: 042
     Dates: start: 20071122, end: 20071220
  4. ZOFRAN [Concomitant]
  5. ZANTAC 150 [Concomitant]
  6. FENISTIL [Concomitant]
  7. DEXAMETHASONE TAB [Concomitant]
  8. NEULASTA [Concomitant]

REACTIONS (1)
  - VENOUS THROMBOSIS [None]
